FAERS Safety Report 17800697 (Version 1)
Quarter: 2020Q2

REPORT INFORMATION
  Report Type: Spontaneous
  Country: US (occurrence: US)
  Receive Date: 20200519
  Receipt Date: 20200519
  Transmission Date: 20200714
  Serious: No
  Sender: FDA-Public Use
  Company Number: US-CELGENEUS-USA-20200307650

PATIENT
  Sex: Female

DRUGS (2)
  1. POMALYST [Suspect]
     Active Substance: POMALIDOMIDE
     Indication: ALLOGENIC STEM CELL TRANSPLANTATION
     Dosage: 2 MILLIGRAM
     Route: 048
     Dates: start: 201909
  2. POMALYST [Suspect]
     Active Substance: POMALIDOMIDE
     Indication: PLASMA CELL MYELOMA
     Dosage: 4 MILLIGRAM
     Route: 048
     Dates: start: 20190819

REACTIONS (5)
  - Pain in extremity [Unknown]
  - Pruritus [Unknown]
  - Rash [Recovered/Resolved]
  - Scab [Unknown]
  - Muscle spasms [Unknown]
